FAERS Safety Report 10025595 (Version 1)
Quarter: 2014Q1

REPORT INFORMATION
  Report Type: Spontaneous
  Country: US (occurrence: US)
  Receive Date: 20140320
  Receipt Date: 20140320
  Transmission Date: 20141002
  Serious: Yes (Hospitalization)
  Sender: FDA-Public Use
  Company Number: US-MPIJNJ-2014MPI000775

PATIENT
  Age: 65 Year
  Sex: Male
  Weight: 78.91 kg

DRUGS (3)
  1. VELCADE [Suspect]
     Indication: PLASMA CELL MYELOMA
     Dosage: 1.3 MG/M2, ON DAY 1,4,8 AND 11 OF EACH CYCLE
     Route: 058
     Dates: start: 20131231, end: 20140221
  2. DEXAMETHASONE [Concomitant]
  3. FENOFIBRATE [Concomitant]

REACTIONS (3)
  - Pulmonary haemorrhage [Recovering/Resolving]
  - Lung infiltration [Recovering/Resolving]
  - Pneumonitis [Recovering/Resolving]
